FAERS Safety Report 12568742 (Version 1)
Quarter: 2016Q3

REPORT INFORMATION
  Report Type: Spontaneous
  Country: US (occurrence: US)
  Receive Date: 20160719
  Receipt Date: 20160719
  Transmission Date: 20161109
  Serious: No
  Sender: FDA-Public Use
  Company Number: US-BEH-2016071212

PATIENT
  Age: 64 Year
  Sex: Female
  Weight: 86.17 kg

DRUGS (16)
  1. ASTEPRO [Concomitant]
     Active Substance: AZELASTINE HYDROCHLORIDE
  2. LIPITOR [Concomitant]
     Active Substance: ATORVASTATIN CALCIUM
  3. CLARITIN [Concomitant]
     Active Substance: LORATADINE
  4. SKELAXIN [Concomitant]
     Active Substance: METAXALONE
  5. EPIPEN [Concomitant]
     Active Substance: EPINEPHRINE
  6. BIAXIN [Concomitant]
     Active Substance: CLARITHROMYCIN
  7. MUCINEX DM ER [Concomitant]
  8. PREDNISONE. [Concomitant]
     Active Substance: PREDNISONE
  9. LEVAQUIN [Concomitant]
     Active Substance: LEVOFLOXACIN
  10. HIZENTRA [Suspect]
     Active Substance: HUMAN IMMUNOGLOBULIN G
     Indication: PRODUCT USED FOR UNKNOWN INDICATION
     Dosage: 10 G, QW
     Route: 058
  11. FLUNISOLIDE. [Concomitant]
     Active Substance: FLUNISOLIDE
  12. BACTRIM DS [Concomitant]
     Active Substance: SULFAMETHOXAZOLE\TRIMETHOPRIM
  13. PLAQUENIL                          /00072602/ [Concomitant]
     Active Substance: HYDROXYCHLOROQUINE DIPHOSPHATE
  14. DHEA [Concomitant]
     Active Substance: PRASTERONE
  15. DIPHENHYDRAMINE. [Concomitant]
     Active Substance: DIPHENHYDRAMINE
  16. BUDESONIDE. [Concomitant]
     Active Substance: BUDESONIDE

REACTIONS (1)
  - Bronchitis [Unknown]

NARRATIVE: CASE EVENT DATE: 201603
